FAERS Safety Report 8349187-9 (Version None)
Quarter: 2012Q2

REPORT INFORMATION
  Report Type: 
  Country: None (occurrence: None)
  Receive Date: 20120510
  Receipt Date: 20120501
  Transmission Date: 20120825
  Serious: Yes (Other)
  Sender: FDA-Public Use
  Company Number: GB-BRISTOL-MYERS SQUIBB COMPANY-16565673

PATIENT
  Sex: Female

DRUGS (4)
  1. VALPROATE SODIUM [Suspect]
  2. FOLIC ACID [Suspect]
     Dosage: DOSAGE: AT NIGHT
  3. ABILIFY [Suspect]
     Dosage: REDUCED TO 2.5MG AT NIGHT
  4. NORETHINDRONE [Suspect]

REACTIONS (2)
  - ABORTION SPONTANEOUS [None]
  - PREGNANCY [None]
